FAERS Safety Report 19375156 (Version 2)
Quarter: 2021Q3

REPORT INFORMATION
  Report Type: Spontaneous
  Country: IN (occurrence: IN)
  Receive Date: 20210604
  Receipt Date: 20210819
  Transmission Date: 20211014
  Serious: Yes (Other)
  Sender: FDA-Public Use
  Company Number: IN-PFIZER INC-2020294931

PATIENT
  Age: 57 Year
  Sex: Female

DRUGS (9)
  1. PALBACE [Suspect]
     Active Substance: PALBOCICLIB
     Dosage: 125 MG, CYCLIC (DAILY FOR 21 DAYS/30 DAYS)
     Route: 048
     Dates: start: 20200611
  2. XGEVA [Concomitant]
     Active Substance: DENOSUMAB
     Dosage: 120 MG, CYCLIC (ONCE IN A 2 MONTHS)
     Route: 058
  3. XGEVA [Concomitant]
     Active Substance: DENOSUMAB
     Dosage: 120 MG, CYCLIC (ONCE IN A MONTHS)
     Route: 058
  4. PALBACE [Suspect]
     Active Substance: PALBOCICLIB
     Indication: BREAST CANCER METASTATIC
     Dosage: 125 MG, 1X/DAY
     Route: 048
     Dates: start: 20200514, end: 2020
  5. PALBACE [Suspect]
     Active Substance: PALBOCICLIB
     Dosage: 125 MG
     Dates: start: 20210423
  6. RIBOCICLIB. [Concomitant]
     Active Substance: RIBOCICLIB
     Dosage: UNK
  7. XGEVA [Concomitant]
     Active Substance: DENOSUMAB
     Dosage: 120 MG, CYCLIC (ONCE IN A MONTHS)
     Route: 058
  8. PALBACE [Suspect]
     Active Substance: PALBOCICLIB
     Dosage: 125 MG, CYCLIC (DAILY FOR 21 DAYS/30 DAYS)
     Route: 048
  9. LEVIPIL [Concomitant]
     Active Substance: LEVETIRACETAM
     Dosage: 500 MG, 2X/DAY

REACTIONS (10)
  - Second primary malignancy [Unknown]
  - Endometrial adenocarcinoma [Unknown]
  - Uterine enlargement [Unknown]
  - Hypertension [Recovered/Resolved]
  - Muscular weakness [Not Recovered/Not Resolved]
  - White blood cell count decreased [Recovering/Resolving]
  - Deep vein thrombosis [Unknown]
  - Dizziness [Unknown]
  - Uterine leiomyoma [Unknown]
  - Haemoglobin decreased [Recovering/Resolving]

NARRATIVE: CASE EVENT DATE: 20200709
